FAERS Safety Report 6975026-4 (Version None)
Quarter: 2010Q3

REPORT INFORMATION
  Report Type: 
  Country: None (occurrence: None)
  Receive Date: 20100910
  Receipt Date: 20090408
  Transmission Date: 20110219
  Serious: No
  Sender: FDA-Public Use
  Company Number: US-WYE-H07759109

PATIENT
  Sex: Female
  Weight: 54.48 kg

DRUGS (2)
  1. PRISTIQ [Suspect]
     Indication: DEPRESSION
     Route: 048
     Dates: start: 20081105, end: 20081125
  2. DEPAKOTE [Concomitant]
     Indication: MOOD ALTERED
     Dates: end: 20081201

REACTIONS (2)
  - MEDICATION RESIDUE [None]
  - NAUSEA [None]
